FAERS Safety Report 15242667 (Version 1)
Quarter: 2018Q3

REPORT INFORMATION
  Report Type: Other
  Country: HR (occurrence: HR)
  Receive Date: 20180806
  Receipt Date: 20180806
  Transmission Date: 20181010
  Serious: Yes (Other)
  Sender: FDA-Public Use
  Company Number: HR-CELLTRION INC.-2018HR021601

PATIENT

DRUGS (4)
  1. REMSIMA [Suspect]
     Active Substance: INFLIXIMAB
     Indication: ANKYLOSING SPONDYLITIS
     Dosage: 300 MG, INFUSION AMPOULES, DRY VIALS
     Route: 042
     Dates: start: 201608, end: 201608
  2. URSOFALK [Concomitant]
     Active Substance: URSODIOL
     Indication: PRIMARY BILIARY CHOLANGITIS
     Dosage: 750 MG (250+500MG), DAILY
     Route: 048
  3. DECORTIN [Concomitant]
     Active Substance: PREDNISONE
     Indication: ARTHRITIS
     Dosage: 10 MG, DAILY
     Route: 048
     Dates: start: 20170307
  4. REMSIMA [Suspect]
     Active Substance: INFLIXIMAB
     Dosage: 300 MG, INFUSION AMPOULES, DRY VIALS
     Route: 042
     Dates: start: 201804, end: 201804

REACTIONS (2)
  - Drug ineffective [Recovering/Resolving]
  - Drug resistance [Recovering/Resolving]

NARRATIVE: CASE EVENT DATE: 201608
